FAERS Safety Report 10403161 (Version 1)
Quarter: 2014Q3

REPORT INFORMATION
  Report Type: Spontaneous
  Country: US (occurrence: US)
  Receive Date: 20140822
  Receipt Date: 20140822
  Transmission Date: 20150326
  Serious: Yes (Hospitalization)
  Sender: FDA-Public Use
  Company Number: US-VIIV HEALTHCARE LIMITED-A1085793A

PATIENT
  Age: 66 Year
  Sex: Female
  Weight: 52.3 kg

DRUGS (1)
  1. EPIVIR [Suspect]
     Active Substance: LAMIVUDINE
     Indication: PRODUCT USED FOR UNKNOWN INDICATION
     Dosage: 150MG UNKNOWN
     Route: 065
     Dates: start: 20100312

REACTIONS (2)
  - Hepatic function abnormal [Unknown]
  - Investigation [Unknown]

NARRATIVE: CASE EVENT DATE: 201408
